FAERS Safety Report 8202429-2 (Version None)
Quarter: 2012Q1

REPORT INFORMATION
  Report Type: 
  Country: None (occurrence: None)
  Receive Date: 20120312
  Receipt Date: 20110824
  Transmission Date: 20120608
  Serious: No
  Sender: FDA-Public Use
  Company Number: US-ABBOTT-11P-163-0849588-00

PATIENT
  Sex: Female

DRUGS (3)
  1. DEPAKOTE [Suspect]
     Indication: CONVULSION
     Dates: start: 20020101
  2. FLONASE [Concomitant]
     Indication: HYPERSENSITIVITY
  3. KLONAZAPAM [Concomitant]
     Indication: CONVULSION
     Dosage: 0.5

REACTIONS (1)
  - RASH [None]
